FAERS Safety Report 17093987 (Version 1)
Quarter: 2019Q4

REPORT INFORMATION
  Report Type: Report from Study
  Country: None (occurrence: ES)
  Receive Date: 20191129
  Receipt Date: 20191129
  Transmission Date: 20200122
  Serious: Yes (Hospitalization)
  Sender: FDA-Public Use
  Company Number: ES-ABBVIE-19P-144-3171923-00

PATIENT
  Age: 57 Year
  Sex: Female
  Weight: 107 kg

DRUGS (19)
  1. CYCLOPHOSPHAMIDE. [Suspect]
     Active Substance: CYCLOPHOSPHAMIDE
     Indication: MANTLE CELL LYMPHOMA
     Route: 065
     Dates: start: 20190725, end: 20191109
  2. DOXORUBICIN [Suspect]
     Active Substance: DOXORUBICIN
     Indication: MANTLE CELL LYMPHOMA
     Route: 065
     Dates: start: 20190725, end: 20191109
  3. PREDNISONE. [Suspect]
     Active Substance: PREDNISONE
     Indication: MANTLE CELL LYMPHOMA
     Route: 065
     Dates: start: 20190725, end: 20191109
  4. IBUPROFEN. [Concomitant]
     Active Substance: IBUPROFEN
     Indication: PAIN
     Route: 065
  5. CISPLATIN. [Suspect]
     Active Substance: CISPLATIN
     Indication: MANTLE CELL LYMPHOMA
     Route: 065
     Dates: start: 20190725, end: 20191109
  6. TRIMETHOPRIM SULFAMETHOXAZOLE [Concomitant]
     Active Substance: SULFAMETHOXAZOLE\TRIMETHOPRIM
     Indication: ANTIBIOTIC PROPHYLAXIS
     Route: 065
     Dates: start: 20190725
  7. CALCIUM [Concomitant]
     Active Substance: CALCIUM
     Indication: HYPOKALAEMIA
     Route: 065
     Dates: start: 20190819
  8. FUROSEMIDE. [Concomitant]
     Active Substance: FUROSEMIDE
     Indication: OEDEMA PERIPHERAL
     Route: 065
     Dates: start: 20190907
  9. RITUXIMAB. [Suspect]
     Active Substance: RITUXIMAB
     Indication: MANTLE CELL LYMPHOMA
     Route: 065
     Dates: start: 20190725, end: 20191109
  10. DEXAMETHASONE. [Suspect]
     Active Substance: DEXAMETHASONE
     Indication: MANTLE CELL LYMPHOMA
     Route: 065
     Dates: start: 20190725, end: 20191109
  11. MAGNESIUM CARBONATE [Concomitant]
     Active Substance: MAGNESIUM CARBONATE
     Indication: HYPOMAGNESAEMIA
     Route: 065
     Dates: start: 20190906
  12. VINCRISTINE [Suspect]
     Active Substance: VINCRISTINE
     Indication: MANTLE CELL LYMPHOMA
     Route: 065
     Dates: start: 20190725, end: 20191109
  13. OMEPRAZOLE. [Concomitant]
     Active Substance: OMEPRAZOLE
     Indication: GASTRITIS PROPHYLAXIS
     Route: 065
     Dates: start: 20190814
  14. ACFOL [Concomitant]
     Active Substance: FOLIC ACID
     Indication: ANAEMIA
     Route: 065
     Dates: start: 20190725
  15. POTASSIUM [Concomitant]
     Active Substance: POTASSIUM
     Indication: HYPOKALAEMIA
     Route: 065
     Dates: start: 20190902
  16. IBRUTINIB [Suspect]
     Active Substance: IBRUTINIB
     Indication: MANTLE CELL LYMPHOMA
     Route: 048
     Dates: start: 20190724, end: 20191106
  17. CYTARABINE. [Suspect]
     Active Substance: CYTARABINE
     Indication: MANTLE CELL LYMPHOMA
     Route: 065
     Dates: start: 20190725, end: 20191109
  18. ACICLOVIR [Concomitant]
     Active Substance: ACYCLOVIR
     Indication: ANTIVIRAL PROPHYLAXIS
     Route: 065
     Dates: start: 20190725
  19. SODIUM [Concomitant]
     Active Substance: SODIUM
     Indication: HYPONATRAEMIA
     Route: 065
     Dates: start: 20190902

REACTIONS (1)
  - Febrile neutropenia [Not Recovered/Not Resolved]

NARRATIVE: CASE EVENT DATE: 20191119
